FAERS Safety Report 10872861 (Version 1)
Quarter: 2015Q1

REPORT INFORMATION
  Report Type: Spontaneous
  Country: US (occurrence: None)
  Receive Date: 20150223
  Receipt Date: 20150223
  Transmission Date: 20150721
  Serious: Yes (Death)
  Sender: FDA-Public Use
  Company Number: None

PATIENT
  Age: 61 Year
  Sex: Female

DRUGS (14)
  1. DILTIAZEM [Concomitant]
     Active Substance: DILTIAZEM
  2. GLIPIZIDE. [Concomitant]
     Active Substance: GLIPIZIDE
  3. WARFARIN [Concomitant]
     Active Substance: WARFARIN
  4. ONDANSETRONG [Concomitant]
  5. METFORMIN [Concomitant]
     Active Substance: METFORMIN HYDROCHLORIDE
  6. METOLAZONE. [Concomitant]
     Active Substance: METOLAZONE
  7. MOMETASONE [Concomitant]
     Active Substance: MOMETASONE
  8. FUROSEMIDE. [Concomitant]
     Active Substance: FUROSEMIDE
  9. SILDENAFIL. [Concomitant]
     Active Substance: SILDENAFIL
  10. PREDNISONE. [Concomitant]
     Active Substance: PREDNISONE
  11. LETAIRIS [Suspect]
     Active Substance: AMBRISENTAN
     Indication: PULMONARY ARTERIAL HYPERTENSION
     Route: 048
     Dates: start: 20141201, end: 20150202
  12. AMBRISENTAN [Concomitant]
     Active Substance: AMBRISENTAN
  13. ALBUTEROL. [Concomitant]
     Active Substance: ALBUTEROL
  14. ATORVASTATIN [Concomitant]
     Active Substance: ATORVASTATIN

REACTIONS (7)
  - Atrial fibrillation [None]
  - Fluid overload [None]
  - Ventricular tachycardia [None]
  - Dyspnoea [None]
  - Sepsis [None]
  - Respiratory distress [None]
  - Pneumonia [None]

NARRATIVE: CASE EVENT DATE: 20150203
